FAERS Safety Report 9193173 (Version 2)
Quarter: 2013Q2

REPORT INFORMATION
  Report Type: Spontaneous
  Country: US (occurrence: US)
  Receive Date: 20130327
  Receipt Date: 20130403
  Transmission Date: 20140414
  Serious: No
  Sender: FDA-Public Use
  Company Number: US-PFIZER INC-2013096204

PATIENT
  Age: 48 Year
  Sex: Female
  Weight: 77.1 kg

DRUGS (8)
  1. AMLODIPINE BESILATE [Suspect]
     Indication: BLOOD PRESSURE ABNORMAL
     Dosage: 2.5 MG, DAILY
     Dates: start: 2012
  2. AMLODIPINE BESILATE [Suspect]
     Indication: HEART RATE IRREGULAR
  3. CHLORTHALIDONE [Suspect]
     Indication: BLOOD PRESSURE ABNORMAL
     Dosage: 25 MG, 2X/DAY
  4. CHLORTHALIDONE [Suspect]
     Indication: HEART RATE IRREGULAR
  5. LOSARTAN POTASSIUM [Suspect]
     Indication: BLOOD PRESSURE
     Dosage: 50 MG, 2X/DAY
  6. LOSARTAN POTASSIUM [Suspect]
     Indication: HEART RATE IRREGULAR
  7. PRAVASTATIN SODIUM [Concomitant]
     Indication: BLOOD CHOLESTEROL INCREASED
     Dosage: 20 MG, DAILY
  8. NEXIUM [Concomitant]
     Dosage: UNK

REACTIONS (1)
  - Drug ineffective for unapproved indication [Unknown]
